FAERS Safety Report 25623537 (Version 1)
Quarter: 2025Q3

REPORT INFORMATION
  Report Type: Spontaneous
  Country: EU (occurrence: EU)
  Receive Date: 20250730
  Receipt Date: 20250730
  Transmission Date: 20251020
  Serious: Yes (Hospitalization, Other)
  Sender: SANDOZ
  Company Number: EU-002147023-NVSC2024GR156242

PATIENT
  Age: 56 Year
  Sex: Male

DRUGS (4)
  1. CYCLOSPORINE [Suspect]
     Active Substance: CYCLOSPORINE
     Indication: Psoriatic arthropathy
     Dosage: 100 MG, Q12H 100 MG BID FOR ?14 YEARS
     Route: 065
     Dates: end: 2016
  2. CYCLOSPORINE [Suspect]
     Active Substance: CYCLOSPORINE
     Indication: Psoriasis
  3. INFLIXIMAB [Suspect]
     Active Substance: INFLIXIMAB
     Indication: Psoriasis
     Route: 065
     Dates: end: 2016
  4. INFLIXIMAB [Suspect]
     Active Substance: INFLIXIMAB
     Indication: Psoriatic arthropathy

REACTIONS (1)
  - Diffuse large B-cell lymphoma stage IV [Recovered/Resolved]

NARRATIVE: CASE EVENT DATE: 20160101
